FAERS Safety Report 5282280-6 (Version None)
Quarter: 2007Q1

REPORT INFORMATION
  Report Type: 
  Country: None (occurrence: None)
  Receive Date: 20070331
  Receipt Date: 20070320
  Transmission Date: 20070707
  Serious: Yes (Hospitalization, Other)
  Sender: FDA-Public Use
  Company Number: DE-PFIZER INC-2007023382

PATIENT
  Sex: Male

DRUGS (1)
  1. LYRICA [Suspect]
     Dosage: DAILY DOSE:900MG
     Route: 048

REACTIONS (3)
  - CARDIAC FAILURE [None]
  - OEDEMA [None]
  - OVERDOSE [None]
